FAERS Safety Report 10251492 (Version 2)
Quarter: 2014Q3

REPORT INFORMATION
  Report Type: Spontaneous
  Country: HU (occurrence: HU)
  Receive Date: 20140623
  Receipt Date: 20140704
  Transmission Date: 20150326
  Serious: Yes (Hospitalization)
  Sender: FDA-Public Use
  Company Number: HU-ROCHE-1422057

PATIENT
  Age: 84 Year
  Sex: Male

DRUGS (6)
  1. CONCOR [Concomitant]
     Active Substance: BISOPROLOL FUMARATE
  2. QUAMATEL [Concomitant]
  3. ACTILYSE [Suspect]
     Active Substance: ALTEPLASE
     Indication: PRODUCT USED FOR UNKNOWN INDICATION
     Route: 042
     Dates: start: 20140511, end: 20140511
  4. KALDYUM [Concomitant]
     Active Substance: POTASSIUM CHLORIDE
  5. FUROSEMID [Concomitant]
     Active Substance: FUROSEMIDE
  6. COVERCARD [Concomitant]

REACTIONS (2)
  - Off label use [Unknown]
  - Aphasia [Not Recovered/Not Resolved]

NARRATIVE: CASE EVENT DATE: 20140511
